FAERS Safety Report 25504867 (Version 2)
Quarter: 2025Q4

REPORT INFORMATION
  Report Type: Spontaneous
  Country: US (occurrence: US)
  Receive Date: 20250702
  Receipt Date: 20251121
  Transmission Date: 20260118
  Serious: No
  Sender: INCYTE
  Company Number: US-EVENT-003268

PATIENT

DRUGS (1)
  1. OPZELURA [Suspect]
     Active Substance: RUXOLITINIB PHOSPHATE
     Indication: Vitiligo
     Dosage: UNK, BID

REACTIONS (2)
  - Product dose omission issue [Unknown]
  - Product physical consistency issue [Unknown]
